FAERS Safety Report 23923539 (Version 1)
Quarter: 2024Q2

REPORT INFORMATION
  Report Type: Spontaneous
  Country: AU (occurrence: AU)
  Receive Date: 20240531
  Receipt Date: 20240531
  Transmission Date: 20240716
  Serious: Yes (Hospitalization)
  Sender: FDA-Public Use
  Company Number: AU-009507513-2405AUS008816

PATIENT
  Age: 67 Year
  Sex: Male

DRUGS (3)
  1. KEYTRUDA [Suspect]
     Active Substance: PEMBROLIZUMAB
     Indication: Neoplasm
     Dosage: 400 MILLIGRAM
     Route: 042
     Dates: start: 20230327, end: 20230327
  2. CAFELKIBART [Suspect]
     Active Substance: CAFELKIBART
     Indication: Neoplasm
     Dosage: 302 MILLIGRAM, QOW
     Route: 042
     Dates: start: 20230327, end: 20230424
  3. PREDNISOLONE [Concomitant]
     Active Substance: PREDNISOLONE
     Indication: Hepatitis
     Dosage: 25 MILLIGRAM, QD
     Route: 048
     Dates: start: 20230501

REACTIONS (3)
  - Dizziness [Not Recovered/Not Resolved]
  - Insomnia [Not Recovered/Not Resolved]
  - Nausea [Not Recovered/Not Resolved]

NARRATIVE: CASE EVENT DATE: 20230502
